FAERS Safety Report 16581912 (Version 1)
Quarter: 2019Q3

REPORT INFORMATION
  Report Type: Spontaneous
  Country: JP (occurrence: JP)
  Receive Date: 20190716
  Receipt Date: 20190716
  Transmission Date: 20191004
  Serious: Yes (Other)
  Sender: FDA-Public Use
  Company Number: JP-ROCHE-2317846

PATIENT
  Age: 60 Year
  Sex: Female
  Weight: 57 kg

DRUGS (1)
  1. AVASTIN [Suspect]
     Active Substance: BEVACIZUMAB
     Indication: BREAST CANCER
     Route: 041
     Dates: start: 20171016, end: 20190125

REACTIONS (7)
  - Epistaxis [Unknown]
  - Cardiac failure [Recovering/Resolving]
  - Hypoaesthesia [Unknown]
  - Cough [Unknown]
  - Cystitis [Recovered/Resolved]
  - Cardiomyopathy [Recovering/Resolving]
  - Nail disorder [Unknown]

NARRATIVE: CASE EVENT DATE: 20181023
